FAERS Safety Report 8423010-6 (Version None)
Quarter: 2012Q2

REPORT INFORMATION
  Report Type: 
  Country: None (occurrence: None)
  Receive Date: 20120608
  Receipt Date: 20120607
  Transmission Date: 20120825
  Serious: Yes (Other)
  Sender: FDA-Public Use
  Company Number: US-GENZYME-HECT-1000192

PATIENT
  Sex: Male

DRUGS (3)
  1. LISINOPRIL [Suspect]
     Dosage: UNK
     Route: 065
  2. ZALEPLON [Suspect]
     Indication: INSOMNIA
     Dosage: UNK
     Route: 065
  3. HECTOROL [Suspect]
     Indication: HYPERPARATHYROIDISM SECONDARY
     Dosage: 2.5 MCG, QD
     Route: 048
     Dates: start: 20100101

REACTIONS (8)
  - THYROID DISORDER [None]
  - EXTRASYSTOLES [None]
  - BLOOD POTASSIUM INCREASED [None]
  - GLOMERULAR FILTRATION RATE ABNORMAL [None]
  - ANAEMIA [None]
  - BLOOD CREATINE ABNORMAL [None]
  - SOMNOLENCE [None]
  - INSOMNIA [None]
